FAERS Safety Report 5574197-4 (Version None)
Quarter: 2007Q4

REPORT INFORMATION
  Report Type: 
  Country: None (occurrence: None)
  Receive Date: 20071130
  Receipt Date: 20070921
  Transmission Date: 20080405
  Serious: No
  Sender: FDA-Public Use
  Company Number: PHEH2007US12024

PATIENT
  Age: 57 Year
  Sex: Male
  Weight: 104.3 kg

DRUGS (5)
  1. TEKTURNA [Suspect]
     Indication: HYPERTENSION
     Dosage: 300, QD, ORAL
     Route: 048
  2. BENICAR [Concomitant]
  3. SULAR [Concomitant]
  4. LISINOPRIL [Concomitant]
  5. COREG [Concomitant]

REACTIONS (1)
  - BLOOD PRESSURE INCREASED [None]
